FAERS Safety Report 9290741 (Version 1)
Quarter: 2013Q2

REPORT INFORMATION
  Report Type: Spontaneous
  Country: GB (occurrence: GB)
  Receive Date: 20130515
  Receipt Date: 20130515
  Transmission Date: 20140414
  Serious: Yes (Death, Other)
  Sender: FDA-Public Use
  Company Number: PHHY2013GB047734

PATIENT
  Age: 45 Year
  Sex: Female
  Weight: 102 kg

DRUGS (6)
  1. DIHYDROCODEINE [Suspect]
     Dosage: 30 MG
  2. METHADONE [Suspect]
  3. ZAPONEX [Suspect]
     Dosage: 25 MG
     Route: 048
     Dates: start: 20110114
  4. ZAPONEX [Suspect]
     Route: 048
     Dates: start: 20100713, end: 20100729
  5. AMISULPRIDE [Concomitant]
     Dosage: 200 MG
  6. DIAZEPAM [Concomitant]
     Dosage: 5 MG

REACTIONS (20)
  - Bronchopneumonia [Fatal]
  - Toxicity to various agents [Fatal]
  - Respiratory depression [Fatal]
  - Nephrosclerosis [Not Recovered/Not Resolved]
  - Brain oedema [Not Recovered/Not Resolved]
  - Pulmonary congestion [Not Recovered/Not Resolved]
  - Pulmonary oedema [Not Recovered/Not Resolved]
  - Pleural haemorrhage [Not Recovered/Not Resolved]
  - Arteriosclerosis coronary artery [Not Recovered/Not Resolved]
  - Aortic arteriosclerosis [Not Recovered/Not Resolved]
  - Hepatomegaly [Not Recovered/Not Resolved]
  - Renal cyst [Not Recovered/Not Resolved]
  - Cardiac fibroma [Not Recovered/Not Resolved]
  - Granuloma [Not Recovered/Not Resolved]
  - Inflammation [Not Recovered/Not Resolved]
  - Hepatic steatosis [Not Recovered/Not Resolved]
  - Spleen congestion [Not Recovered/Not Resolved]
  - Adhesion [Not Recovered/Not Resolved]
  - Epistaxis [Unknown]
  - Excoriation [Not Recovered/Not Resolved]
